FAERS Safety Report 8398761-2 (Version None)
Quarter: 2012Q2

REPORT INFORMATION
  Report Type: 
  Country: None (occurrence: None)
  Receive Date: 20120531
  Receipt Date: 20120529
  Transmission Date: 20120825
  Serious: Yes (Hospitalization, Other)
  Sender: FDA-Public Use
  Company Number: PHEH2012US009346

PATIENT
  Sex: Female

DRUGS (1)
  1. GILENYA [Suspect]
     Indication: MULTIPLE SCLEROSIS
     Dosage: 0.5 MG, QD
     Route: 048
     Dates: start: 20111212

REACTIONS (6)
  - BALANCE DISORDER [None]
  - SLEEP DISORDER [None]
  - HEADACHE [None]
  - PAIN [None]
  - NEURALGIA [None]
  - FALL [None]
